FAERS Safety Report 20839573 (Version 1)
Quarter: 2022Q2

REPORT INFORMATION
  Report Type: Spontaneous
  Country: FR (occurrence: FR)
  Receive Date: 20220517
  Receipt Date: 20220517
  Transmission Date: 20220720
  Serious: Yes (Other)
  Sender: FDA-Public Use
  Company Number: None

PATIENT
  Age: 62 Year
  Sex: Male
  Weight: 107 kg

DRUGS (4)
  1. XELODA [Suspect]
     Active Substance: CAPECITABINE
     Indication: Cholangiocarcinoma
     Route: 048
     Dates: start: 20220304, end: 20220310
  2. METHYLPREDNISOLONE [Suspect]
     Active Substance: METHYLPREDNISOLONE
     Indication: Chemotherapy
     Dosage: SELON CYCLE
     Route: 041
     Dates: start: 20211014, end: 20220303
  3. OXALIPLATIN [Suspect]
     Active Substance: OXALIPLATIN
     Indication: Cholangiocarcinoma
     Dosage: SELON CYCLE
     Route: 041
     Dates: start: 20211014, end: 20220303
  4. FLUOROURACIL [Suspect]
     Active Substance: FLUOROURACIL
     Indication: Cholangiocarcinoma
     Dosage: SELON CYCLE
     Route: 041
     Dates: start: 20211014, end: 20220203

REACTIONS (1)
  - Behaviour disorder [Unknown]

NARRATIVE: CASE EVENT DATE: 20220309
